FAERS Safety Report 7624877-1 (Version None)
Quarter: 2011Q3

REPORT INFORMATION
  Report Type: 
  Country: None (occurrence: None)
  Receive Date: 20110720
  Receipt Date: 20090219
  Transmission Date: 20111222
  Serious: Yes (Hospitalization, Other)
  Sender: FDA-Public Use
  Company Number: DE-GENENTECH-321685

PATIENT
  Age: 94 Year
  Sex: Male

DRUGS (1)
  1. LUCENTIS [Suspect]
     Indication: AGE-RELATED MACULAR DEGENERATION
     Dosage: UNK UNK, UNKNOWN
     Route: 065
     Dates: start: 20080422

REACTIONS (3)
  - VISUAL ACUITY REDUCED [None]
  - BLINDNESS [None]
  - CEREBROVASCULAR ACCIDENT [None]
